FAERS Safety Report 6117461-2 (Version None)
Quarter: 2009Q1

REPORT INFORMATION
  Report Type: 
  Country: None (occurrence: None)
  Receive Date: 20090314
  Receipt Date: 20090210
  Transmission Date: 20090719
  Serious: No
  Sender: FDA-Public Use
  Company Number: US-ABBOTT-09P-163-0498591-00

PATIENT
  Sex: Female
  Weight: 90.346 kg

DRUGS (1)
  1. HUMIRA [Suspect]
     Indication: DRUG USE FOR UNKNOWN INDICATION
     Route: 058
     Dates: start: 20090103, end: 20090123

REACTIONS (11)
  - ABDOMINAL PAIN [None]
  - ASTHENIA [None]
  - DIARRHOEA [None]
  - DIZZINESS [None]
  - GASTROENTERITIS VIRAL [None]
  - GRIP STRENGTH DECREASED [None]
  - HEADACHE [None]
  - MALAISE [None]
  - NEUROLOGICAL SYMPTOM [None]
  - SWEAT GLAND INFECTION [None]
  - WEIGHT DECREASED [None]
